FAERS Safety Report 22278107 (Version 1)
Quarter: 2023Q2

REPORT INFORMATION
  Report Type: Spontaneous
  Country: IT (occurrence: IT)
  Receive Date: 20230503
  Receipt Date: 20230503
  Transmission Date: 20230721
  Serious: Yes (Hospitalization, Other)
  Sender: FDA-Public Use
  Company Number: IT-MINISAL02-920535

PATIENT
  Age: 12 Year
  Sex: Female
  Weight: 59 kg

DRUGS (3)
  1. GABAPENTIN [Suspect]
     Active Substance: GABAPENTIN
     Indication: Mental disorder
     Dosage: UNK MILLIGRAM TOTAL (UNITA DI MISURA: MILLIGRAMMIFREQUENZA SOMMINISTRAZIONE: TOTALE VIA SOMMINISTRAZ
     Route: 048
     Dates: start: 20230116, end: 20230116
  2. QUETIAPINE [Suspect]
     Active Substance: QUETIAPINE
     Indication: Bipolar disorder
     Dosage: UNK MILLIGRAM TOTAL (UNITA DI MISURA: MILLIGRAMMIFREQUENZA SOMMINISTRAZIONE: TOTALE VIA SOMMINISTRAZ
     Route: 048
     Dates: start: 20230116, end: 20230116
  3. LITHIUM CARBONATE [Suspect]
     Active Substance: LITHIUM CARBONATE
     Indication: Bipolar disorder
     Dosage: 900 MILLIGRAM, ONCE A DAY(DOSAGGIO: 900UNITA DI MISURA: MILLIGRAMMI FREQUENZA SOMMINISTRAZIONE: QUOT
     Route: 048

REACTIONS (4)
  - Psychomotor hyperactivity [Recovering/Resolving]
  - Sopor [Recovering/Resolving]
  - Suicide attempt [Unknown]
  - Drug abuse [Unknown]

NARRATIVE: CASE EVENT DATE: 20230116
